FAERS Safety Report 20526175 (Version 1)
Quarter: 2022Q1

REPORT INFORMATION
  Report Type: Spontaneous
  Country: US (occurrence: US)
  Receive Date: 20220228
  Receipt Date: 20220228
  Transmission Date: 20220424
  Serious: No
  Sender: FDA-Public Use
  Company Number: US-HRARD-2021000511

PATIENT
  Sex: Male

DRUGS (1)
  1. METOPIRONE [Suspect]
     Active Substance: METYRAPONE

REACTIONS (3)
  - Product quality issue [Unknown]
  - Product taste abnormal [Unknown]
  - Off label use [Not Recovered/Not Resolved]
